FAERS Safety Report 20602976 (Version 1)
Quarter: 2022Q1

REPORT INFORMATION
  Report Type: Spontaneous
  Country: US (occurrence: US)
  Receive Date: 20220316
  Receipt Date: 20220316
  Transmission Date: 20220423
  Serious: No
  Sender: FDA-Public Use
  Company Number: US-PFIZER INC-202200382982

PATIENT
  Age: 72 Year
  Sex: Female

DRUGS (1)
  1. LATANOPROST [Suspect]
     Active Substance: LATANOPROST
     Indication: Glaucoma
     Dosage: 2 DROP, 1X/DAY (ONE DROP FOR EACH EYE BEFORE GOING TO BED)
     Route: 047
     Dates: start: 202010

REACTIONS (3)
  - Eye irritation [Recovered/Resolved]
  - Vision blurred [Unknown]
  - Eye pruritus [Unknown]
